FAERS Safety Report 14872445 (Version 1)
Quarter: 2018Q2

REPORT INFORMATION
  Report Type: Other
  Country: FR (occurrence: FR)
  Receive Date: 20180510
  Receipt Date: 20180510
  Transmission Date: 20180711
  Serious: Yes (Life-Threatening, Hospitalization)
  Sender: FDA-Public Use
  Company Number: FR-DENTSPLY-2018SCDP000120

PATIENT

DRUGS (1)
  1. XYLOCAINE WITH ADRENALINE (EPINEPHRINE) [Suspect]
     Active Substance: EPINEPHRINE BITARTRATE\LIDOCAINE HYDROCHLORIDE
     Indication: LOCAL ANAESTHESIA
     Dosage: UNK
     Dates: start: 20170601, end: 20170601

REACTIONS (6)
  - Pulmonary alveolar haemorrhage [Recovered/Resolved]
  - Circulatory collapse [Recovered/Resolved]
  - Hypoxia [Recovered/Resolved]
  - Seizure [Recovered/Resolved]
  - Pulmonary arterial hypertension [Recovered/Resolved]
  - Acidosis [Recovered/Resolved]

NARRATIVE: CASE EVENT DATE: 20170601
